FAERS Safety Report 21969819 (Version 2)
Quarter: 2023Q1

REPORT INFORMATION
  Report Type: Report from Study
  Country: IT (occurrence: IT)
  Receive Date: 20230208
  Receipt Date: 20230226
  Transmission Date: 20230418
  Serious: Yes (Other)
  Sender: FDA-Public Use
  Company Number: IT-002147023-NVSC2022IT035118

PATIENT
  Age: 35 Year
  Sex: Female
  Weight: 57 kg

DRUGS (26)
  1. ERENUMAB [Suspect]
     Active Substance: ERENUMAB
     Indication: Headache
     Dosage: 140 MILLIGRAM, QMO
     Route: 058
     Dates: start: 20210518, end: 20220125
  2. ERENUMAB [Suspect]
     Active Substance: ERENUMAB
     Indication: Migraine prophylaxis
  3. SUMATRIPTAN SUCCINATE [Suspect]
     Active Substance: SUMATRIPTAN SUCCINATE
     Indication: Migraine
     Dosage: 50 MILLIGRAM
     Route: 065
     Dates: start: 20220329, end: 20220329
  4. LEVOTHYROXINE [Concomitant]
     Active Substance: LEVOTHYROXINE
     Indication: Hypothyroidism
     Dosage: 50 MICROGRAM
     Route: 048
     Dates: start: 202005, end: 20220315
  5. LEVOTHYROXINE [Concomitant]
     Active Substance: LEVOTHYROXINE
     Dosage: 25 MICROGRAM
     Route: 048
     Dates: start: 20220316
  6. ACETAMINOPHEN [Concomitant]
     Active Substance: ACETAMINOPHEN
     Indication: Headache
     Dosage: 1000 MILLIGRAM
     Route: 048
     Dates: start: 20211216
  7. ACETAMINOPHEN [Concomitant]
     Active Substance: ACETAMINOPHEN
     Indication: Migraine
     Dosage: 1000 MILLIGRAM
     Route: 048
     Dates: start: 20211225
  8. ACETAMINOPHEN [Concomitant]
     Active Substance: ACETAMINOPHEN
     Dosage: 1000 MILLIGRAM
     Route: 048
     Dates: start: 20210102
  9. ACETAMINOPHEN [Concomitant]
     Active Substance: ACETAMINOPHEN
     Dosage: 1000 MILLIGRAM
     Route: 048
     Dates: start: 20210103
  10. ACETAMINOPHEN [Concomitant]
     Active Substance: ACETAMINOPHEN
     Dosage: 1000 MILLIGRAM
     Route: 048
     Dates: start: 20210204
  11. ACETAMINOPHEN [Concomitant]
     Active Substance: ACETAMINOPHEN
     Dosage: 1000 MILLIGRAM
     Route: 048
     Dates: start: 20210208
  12. CAFFEINE\INDOMETHACIN\PROCHLORPERAZINE MALEATE [Concomitant]
     Active Substance: CAFFEINE\INDOMETHACIN\PROCHLORPERAZINE MALEATE
     Indication: Headache
     Dosage: 75 MG
     Route: 065
     Dates: start: 20211210
  13. CAFFEINE\INDOMETHACIN\PROCHLORPERAZINE MALEATE [Concomitant]
     Active Substance: CAFFEINE\INDOMETHACIN\PROCHLORPERAZINE MALEATE
     Indication: Migraine
     Dosage: 2 MG
     Route: 065
     Dates: start: 20211210
  14. CAFFEINE\INDOMETHACIN\PROCHLORPERAZINE MALEATE [Concomitant]
     Active Substance: CAFFEINE\INDOMETHACIN\PROCHLORPERAZINE MALEATE
     Dosage: 25 MG
     Route: 065
     Dates: start: 20211210
  15. CAFFEINE\INDOMETHACIN\PROCHLORPERAZINE MALEATE [Concomitant]
     Active Substance: CAFFEINE\INDOMETHACIN\PROCHLORPERAZINE MALEATE
     Dosage: UNK
     Route: 065
     Dates: start: 20211221, end: 20211224
  16. CAFFEINE\INDOMETHACIN\PROCHLORPERAZINE MALEATE [Concomitant]
     Active Substance: CAFFEINE\INDOMETHACIN\PROCHLORPERAZINE MALEATE
     Dosage: UNK
     Route: 065
     Dates: start: 20211230
  17. CAFFEINE\INDOMETHACIN\PROCHLORPERAZINE MALEATE [Concomitant]
     Active Substance: CAFFEINE\INDOMETHACIN\PROCHLORPERAZINE MALEATE
     Dosage: UNK
     Route: 065
     Dates: start: 20220102
  18. CAFFEINE\INDOMETHACIN\PROCHLORPERAZINE MALEATE [Concomitant]
     Active Substance: CAFFEINE\INDOMETHACIN\PROCHLORPERAZINE MALEATE
     Dosage: UNK
     Route: 065
     Dates: start: 20220104
  19. CAFFEINE\INDOMETHACIN\PROCHLORPERAZINE MALEATE [Concomitant]
     Active Substance: CAFFEINE\INDOMETHACIN\PROCHLORPERAZINE MALEATE
     Dosage: UNK
     Route: 065
     Dates: start: 20220105
  20. CAFFEINE\INDOMETHACIN\PROCHLORPERAZINE MALEATE [Concomitant]
     Active Substance: CAFFEINE\INDOMETHACIN\PROCHLORPERAZINE MALEATE
     Dosage: UNK, (ONLY TAKEN AS SYMPTOMATIC FOR MIGRAINE)
     Route: 065
     Dates: start: 20220114
  21. ACETAMINOPHEN [Concomitant]
     Active Substance: ACETAMINOPHEN
     Indication: SARS-CoV-2 test positive
     Dosage: 1 G
     Route: 048
     Dates: start: 20220322, end: 20220329
  22. ACETAMINOPHEN [Concomitant]
     Active Substance: ACETAMINOPHEN
     Indication: Migraine
     Dosage: 1 G, PRN
     Route: 048
  23. TACHIPIRINA [Concomitant]
     Active Substance: ACETAMINOPHEN
     Indication: Migraine
     Dosage: UNK, 1 (WAS SAME AS PARACETAMOL)
     Route: 065
     Dates: start: 20220329, end: 20220329
  24. ASCORBIC ACID\FERRIC PYROPHOSPHATE [Concomitant]
     Active Substance: ASCORBIC ACID\FERRIC PYROPHOSPHATE
     Indication: Iron deficiency
     Dosage: 1 DOSAGE FORM, QD
     Route: 048
     Dates: start: 20220901, end: 20221116
  25. LEVOTHYROXINE SODIUM [Concomitant]
     Active Substance: LEVOTHYROXINE SODIUM
     Indication: Autoimmune thyroiditis
     Dosage: UNK, (50 UG/DIE PER 5 DAYS 75UG/DIE PER 2 DAYS)
     Route: 048
     Dates: start: 202005, end: 20220309
  26. LEVOTHYROXINE SODIUM [Concomitant]
     Active Substance: LEVOTHYROXINE SODIUM
     Dosage: UNK, (50 UG PER 4 DAYS 75 UG PER 3 DAYS)
     Route: 048
     Dates: start: 20220310

REACTIONS (7)
  - Hypothyroidism [Recovering/Resolving]
  - Maternal exposure during pregnancy [Unknown]
  - Menstruation irregular [Unknown]
  - Induced labour [Unknown]
  - Normal newborn [Unknown]
  - Fatigue [Recovered/Resolved]
  - Headache [Recovered/Resolved]

NARRATIVE: CASE EVENT DATE: 20220307
